FAERS Safety Report 26061579 (Version 2)
Quarter: 2025Q4

REPORT INFORMATION
  Report Type: Spontaneous
  Country: JP (occurrence: JP)
  Receive Date: 20251118
  Receipt Date: 20251128
  Transmission Date: 20260117
  Serious: Yes (Hospitalization, Other)
  Sender: ALEXION PHARMACEUTICALS
  Company Number: JP-ASTRAZENECA-202511JPN010013JP

PATIENT
  Age: 76 Year
  Sex: Male

DRUGS (1)
  1. TAGRISSO [Suspect]
     Active Substance: OSIMERTINIB
     Indication: Non-small cell lung cancer
     Route: 065

REACTIONS (5)
  - Rhabdomyolysis [Unknown]
  - Cardiac dysfunction [Unknown]
  - Acute kidney injury [Unknown]
  - Pneumonia pseudomonal [Unknown]
  - Septic shock [Unknown]
